FAERS Safety Report 24586891 (Version 1)
Quarter: 2024Q4

REPORT INFORMATION
  Report Type: Spontaneous
  Country: PH (occurrence: PH)
  Receive Date: 20241107
  Receipt Date: 20241107
  Transmission Date: 20250115
  Serious: Yes (Hospitalization)
  Sender: MDD OPERATIONS
  Company Number: PH-ZAMBON-202402914COR

PATIENT

DRUGS (5)
  1. SAFINAMIDE [Suspect]
     Active Substance: SAFINAMIDE
     Indication: Parkinson^s disease
     Dosage: 50 MG, DAILY
     Route: 048
     Dates: start: 20241008, end: 20241017
  2. LEVODOPA [Concomitant]
     Active Substance: LEVODOPA
     Indication: Parkinson^s disease
     Dosage: 1000 MG, DAILY
     Route: 048
  3. LEVODOPA [Concomitant]
     Active Substance: LEVODOPA
     Dosage: 200 MG
     Route: 048
  4. CARBIDOPA [Concomitant]
     Active Substance: CARBIDOPA
     Indication: Parkinson^s disease
     Dosage: 100 MG, DAILY
     Route: 048
  5. CARBIDOPA [Concomitant]
     Active Substance: CARBIDOPA
     Dosage: 50 MG, DAILY
     Route: 048

REACTIONS (3)
  - Vomiting [Recovered/Resolved]
  - Dehydration [Recovered/Resolved]
  - Abdominal pain [Recovered/Resolved]

NARRATIVE: CASE EVENT DATE: 20241001
